FAERS Safety Report 6029719-6 (Version None)
Quarter: 2009Q1

REPORT INFORMATION
  Report Type: 
  Country: None (occurrence: None)
  Receive Date: 20090107
  Receipt Date: 20090107
  Transmission Date: 20090719
  Serious: Yes (Other)
  Sender: FDA-Public Use
  Company Number: US-ABBOTT-08P-163-0495446-00

PATIENT
  Sex: Female
  Weight: 52.21 kg

DRUGS (11)
  1. HUMIRA [Suspect]
     Indication: ARTHRITIS
     Dates: start: 20080801, end: 20081101
  2. DURAGESIC FENTYNAL PATCH [Concomitant]
     Indication: PAIN
     Route: 061
  3. PERCOCET [Concomitant]
     Indication: PAIN
     Dosage: 10/325 MG UP TO 5X'S DAILY
     Dates: start: 20080401
  4. PRILOSEC [Concomitant]
     Indication: DRUG USE FOR UNKNOWN INDICATION
  5. IMURAN [Concomitant]
     Indication: DRUG USE FOR UNKNOWN INDICATION
     Dates: start: 20010101
  6. CYMBALTA [Concomitant]
     Indication: DRUG USE FOR UNKNOWN INDICATION
     Dates: start: 20080801
  7. PHENERGAN HCL [Concomitant]
     Indication: NAUSEA
  8. HYOSCYAMINE [Concomitant]
     Indication: DRUG USE FOR UNKNOWN INDICATION
     Dosage: PRN
     Route: 060
  9. FLEXERIL [Concomitant]
     Indication: DRUG USE FOR UNKNOWN INDICATION
  10. CLONZAPINE [Concomitant]
     Indication: DRUG USE FOR UNKNOWN INDICATION
  11. TRAZODONE HCL [Concomitant]
     Indication: DRUG USE FOR UNKNOWN INDICATION
     Dosage: NIGHTLY
     Dates: start: 20080801

REACTIONS (1)
  - SINUSITIS [None]
